FAERS Safety Report 11920367 (Version 3)
Quarter: 2016Q2

REPORT INFORMATION
  Report Type: Spontaneous
  Country: JP (occurrence: JP)
  Receive Date: 20160115
  Receipt Date: 20160404
  Transmission Date: 20160815
  Serious: Yes (Life-Threatening, Hospitalization, Other)
  Sender: FDA-Public Use
  Company Number: JP-BRISTOL-MYERS SQUIBB COMPANY-BMS-2016-001504

PATIENT
  Age: 79 Year
  Sex: Female
  Weight: 41 kg

DRUGS (1)
  1. ELIQUIS [Suspect]
     Active Substance: APIXABAN
     Indication: CEREBROVASCULAR ACCIDENT PROPHYLAXIS
     Dosage: 5 MG, QD
     Route: 048
     Dates: start: 201512

REACTIONS (3)
  - Stent placement [Unknown]
  - Post procedural sepsis [Recovered/Resolved]
  - Aneurysm ruptured [Recovered/Resolved]

NARRATIVE: CASE EVENT DATE: 20151231
